FAERS Safety Report 11572187 (Version 1)
Quarter: 2015Q3

REPORT INFORMATION
  Report Type: Spontaneous
  Country: US (occurrence: US)
  Receive Date: 20150916
  Receipt Date: 20150916
  Transmission Date: 20151125
  Serious: No
  Sender: FDA-Public Use
  Company Number: US-ELI_LILLY_AND_COMPANY-US200910002421

PATIENT
  Age: 75 Year
  Sex: Female

DRUGS (1)
  1. FORTEO [Suspect]
     Active Substance: TERIPARATIDE
     Indication: OSTEOPOROSIS

REACTIONS (8)
  - Joint stiffness [Unknown]
  - Abdominal discomfort [Unknown]
  - Amnesia [Unknown]
  - Vomiting [Unknown]
  - Back pain [Unknown]
  - Weight increased [Unknown]
  - Loss of dreaming [Unknown]
  - Muscle spasms [Unknown]
